FAERS Safety Report 20921743 (Version 15)
Quarter: 2025Q1

REPORT INFORMATION
  Report Type: Report from Study
  Country: US (occurrence: US)
  Receive Date: 20220606
  Receipt Date: 20250220
  Transmission Date: 20250408
  Serious: Yes (Hospitalization, Other)
  Sender: ABBVIE
  Company Number: US-ABBVIE-22K-163-4385920-00

PATIENT
  Age: 60 Year
  Sex: Female

DRUGS (4)
  1. IMBRUVICA [Suspect]
     Active Substance: IBRUTINIB
     Indication: Chronic lymphocytic leukaemia
     Route: 048
     Dates: start: 20201019
  2. IMBRUVICA [Suspect]
     Active Substance: IBRUTINIB
     Indication: Chronic lymphocytic leukaemia
     Route: 048
     Dates: start: 20190531
  3. IMBRUVICA [Suspect]
     Active Substance: IBRUTINIB
     Indication: Chronic lymphocytic leukaemia
     Dosage: LAST ADMIN DATE OCT 2020
     Route: 048
     Dates: start: 202010
  4. IMBRUVICA [Suspect]
     Active Substance: IBRUTINIB
     Indication: Chronic lymphocytic leukaemia
     Route: 048

REACTIONS (22)
  - Amnesia [Unknown]
  - Oropharyngeal pain [Unknown]
  - Ruptured cerebral aneurysm [Not Recovered/Not Resolved]
  - Stevens-Johnson syndrome [Unknown]
  - Sinusitis [Unknown]
  - Insomnia [Unknown]
  - Trismus [Unknown]
  - Anxiety [Unknown]
  - Lip haemorrhage [Unknown]
  - Purulent discharge [Unknown]
  - Stress [Unknown]
  - Constipation [Unknown]
  - Axillary mass [Unknown]
  - Fatigue [Unknown]
  - Drug hypersensitivity [Unknown]
  - Headache [Unknown]
  - Emotional distress [Unknown]
  - Surgery [Unknown]
  - Cognitive disorder [Unknown]
  - Memory impairment [Unknown]
  - Reading disorder [Unknown]
  - Confusional state [Not Recovered/Not Resolved]

NARRATIVE: CASE EVENT DATE: 19870101
